FAERS Safety Report 22152144 (Version 2)
Quarter: 2023Q2

REPORT INFORMATION
  Report Type: Report from Study
  Country: US (occurrence: None)
  Receive Date: 20230329
  Receipt Date: 20230411
  Transmission Date: 20230722
  Serious: Yes (Hospitalization, Other)
  Sender: FDA-Public Use
  Company Number: US-ROCHE-3316598

PATIENT
  Age: 62 Year
  Sex: Male
  Weight: 99.8 kg

DRUGS (3)
  1. VENETOCLAX [Suspect]
     Active Substance: VENETOCLAX
     Indication: Chronic lymphocytic leukaemia
     Dosage: ON DAYS 1-7 CYCLE 3?LAST ADMINISTERED DATE: 05-APR-2022
     Route: 048
     Dates: start: 20210311
  2. OBINUTUZUMAB [Suspect]
     Active Substance: OBINUTUZUMAB
     Indication: Chronic lymphocytic leukaemia
     Dosage: ON DAY 1, CYCLE 1?LAST ADMINISTERED DATE: 28/JUL/2021
     Route: 042
     Dates: start: 20230311
  3. IBRUTINIB [Suspect]
     Active Substance: IBRUTINIB
     Indication: Chronic lymphocytic leukaemia
     Dosage: LAST ADMINISTERED DATE :23/AUG/2022
     Route: 048
     Dates: start: 20210311

REACTIONS (3)
  - Pneumonia [Recovered/Resolved]
  - Sepsis [Recovered/Resolved]
  - Acute respiratory failure [Recovered/Resolved]

NARRATIVE: CASE EVENT DATE: 20230106
